FAERS Safety Report 14342915 (Version 1)
Quarter: 2018Q1

REPORT INFORMATION
  Report Type: Spontaneous
  Country: AU (occurrence: AU)
  Receive Date: 20180102
  Receipt Date: 20180102
  Transmission Date: 20180509
  Serious: Yes (Other)
  Sender: FDA-Public Use
  Company Number: AU-INDIVIOR LIMITED-INDV-107183-2017

PATIENT

DRUGS (1)
  1. SUBOXONE [Suspect]
     Active Substance: BUPRENORPHINE HYDROCHLORIDE\NALOXONE HYDROCHLORIDE
     Indication: PRODUCT USED FOR UNKNOWN INDICATION
     Dosage: UNK
     Route: 065

REACTIONS (6)
  - Injection site scar [Unknown]
  - Bacterial infection [Unknown]
  - Thrombosis [Unknown]
  - Diarrhoea [Unknown]
  - Intentional product misuse [Unknown]
  - Abscess [Unknown]
